FAERS Safety Report 5692623-7 (Version None)
Quarter: 2008Q2

REPORT INFORMATION
  Report Type: 
  Country: None (occurrence: None)
  Receive Date: 20080402
  Receipt Date: 20080303
  Transmission Date: 20081010
  Serious: Yes (Death, Life-Threatening, Hospitalization)
  Sender: FDA-Public Use
  Company Number: JP-GENENTECH-256279

PATIENT
  Sex: Male
  Weight: 47.3 kg

DRUGS (11)
  1. TRASTUZUMAB [Suspect]
     Indication: GASTRIC CANCER
     Dosage: 6 MG/KG, Q3W
     Route: 042
     Dates: start: 20070828, end: 20071031
  2. CAPECITABINE [Suspect]
     Indication: GASTRIC CANCER
     Dosage: 2600 MG, QD
     Route: 048
     Dates: start: 20070828, end: 20071114
  3. CISPLATIN [Suspect]
     Indication: GASTRIC CANCER
     Dosage: 42.8 MG/M2, Q3W
     Route: 042
     Dates: start: 20070828, end: 20071031
  4. IRINOTECAN HCL [Suspect]
     Indication: DRUG USE FOR UNKNOWN INDICATION
     Dates: start: 20071128, end: 20071214
  5. PACLITAXEL [Suspect]
     Indication: DRUG USE FOR UNKNOWN INDICATION
     Dosage: UNK, UNK
     Dates: start: 20080108, end: 20080122
  6. DOBUTAMINE HCL [Concomitant]
     Indication: CARDIAC FAILURE
  7. DOPAMINE HCL [Concomitant]
     Indication: CARDIAC FAILURE
  8. FUROSEMIDE [Concomitant]
     Indication: DRUG USE FOR UNKNOWN INDICATION
     Dates: start: 20080107, end: 20080129
  9. MORPHINE [Concomitant]
     Indication: DRUG USE FOR UNKNOWN INDICATION
     Dates: start: 20080110, end: 20080129
  10. RABEPRAZOLE SODIUM [Concomitant]
     Indication: DRUG USE FOR UNKNOWN INDICATION
     Dates: start: 20071023, end: 20080208
  11. VASOPRESSOR [Concomitant]
     Indication: CARDIAC FAILURE

REACTIONS (2)
  - ANGINA UNSTABLE [None]
  - CARDIAC FAILURE [None]
